FAERS Safety Report 9441089 (Version 2)
Quarter: 2013Q4

REPORT INFORMATION
  Report Type: Spontaneous
  Country: BR (occurrence: BR)
  Receive Date: 20130805
  Receipt Date: 20131008
  Transmission Date: 20140711
  Serious: Yes (Other)
  Sender: FDA-Public Use
  Company Number: BR-GLAXOSMITHKLINE-A1036368A

PATIENT
  Age: 64 Year
  Sex: Male

DRUGS (2)
  1. COMBODART [Suspect]
     Indication: BENIGN PROSTATIC HYPERPLASIA
     Dosage: 1CAP PER DAY
     Route: 065
     Dates: start: 201304, end: 201307
  2. DOXAZOSIN [Concomitant]
     Dosage: 4MG PER DAY

REACTIONS (4)
  - Urinary retention [Recovered/Resolved]
  - Dysuria [Recovered/Resolved]
  - Urinary incontinence [Recovered/Resolved]
  - Benign prostatic hyperplasia [Unknown]
